FAERS Safety Report 17498718 (Version 2)
Quarter: 2020Q1

REPORT INFORMATION
  Report Type: Spontaneous
  Country: US (occurrence: US)
  Receive Date: 20200304
  Receipt Date: 20200327
  Transmission Date: 20200409
  Serious: Yes (Other)
  Sender: FDA-Public Use
  Company Number: US-TAKEDA-2020TUS012477

PATIENT
  Age: 41 Year
  Sex: Female

DRUGS (4)
  1. LEXAPRO [Suspect]
     Active Substance: ESCITALOPRAM OXALATE
     Indication: PRODUCT USED FOR UNKNOWN INDICATION
     Dosage: 10 MILLIGRAM, BID
     Route: 048
     Dates: start: 2012, end: 20200128
  2. TRINTELLIX [Suspect]
     Active Substance: VORTIOXETINE HYDROBROMIDE
     Indication: MAJOR DEPRESSION
  3. TRINTELLIX [Suspect]
     Active Substance: VORTIOXETINE HYDROBROMIDE
     Indication: DEPRESSION
     Dosage: 5 MILLIGRAM, QD
     Route: 048
     Dates: start: 20200128, end: 20200218
  4. TRINTELLIX [Suspect]
     Active Substance: VORTIOXETINE HYDROBROMIDE
     Indication: ANXIETY
     Dosage: 10 MILLIGRAM, QD
     Route: 048
     Dates: start: 20200218, end: 20200223

REACTIONS (1)
  - Serotonin syndrome [Recovered/Resolved]

NARRATIVE: CASE EVENT DATE: 20200218
